FAERS Safety Report 17046211 (Version 1)
Quarter: 2019Q4

REPORT INFORMATION
  Report Type: Spontaneous
  Country: GB (occurrence: GB)
  Receive Date: 20191119
  Receipt Date: 20191119
  Transmission Date: 20200122
  Serious: Yes (Hospitalization)
  Sender: FDA-Public Use
  Company Number: GB-TEVA-2019-GB-1138876

PATIENT
  Age: 36 Year

DRUGS (4)
  1. FEXOFENADINE [Concomitant]
     Active Substance: FEXOFENADINE HYDROCHLORIDE
     Dosage: 180 MG
  2. BETAMETHASONE AND FUSIDIC ACID [Concomitant]
     Dosage: 2 DOSAGE FORMS
  3. OSELTAMIVIR [Suspect]
     Active Substance: OSELTAMIVIR
     Dosage: FOR 5 DAYS 150 MG
     Dates: start: 20180124, end: 20180127
  4. SALBUTAMOL [Concomitant]
     Active Substance: ALBUTEROL
     Dosage: 100MCG/DOSE - 1 OR 2 PUFFS UP TO 4 TIMES A DAY
     Route: 055

REACTIONS (3)
  - Cellulitis [Unknown]
  - Erythema [Unknown]
  - Swelling face [Unknown]

NARRATIVE: CASE EVENT DATE: 20180127
